FAERS Safety Report 9656100 (Version 2)
Quarter: 2013Q4

REPORT INFORMATION
  Report Type: Spontaneous
  Country: MX (occurrence: MX)
  Receive Date: 20131030
  Receipt Date: 20131030
  Transmission Date: 20140711
  Serious: Yes (Death)
  Sender: FDA-Public Use
  Company Number: PHHY2012MX109641

PATIENT
  Age: 66 Year
  Sex: Female

DRUGS (4)
  1. FEMARA [Suspect]
     Indication: NEOPLASM MALIGNANT
     Dosage: 2.5 MG, UNK
     Route: 048
  2. LOSARTAN [Concomitant]
     Indication: HYPERTENSION
     Dosage: 1 U, EVERY 12 HOURS
     Dates: start: 2008
  3. INSULIN [Concomitant]
     Indication: DIABETES MELLITUS
     Dosage: UNK UKN, UNK
  4. AGRIPAN [Concomitant]
     Indication: HYPERTENSION
     Dosage: 0.5 U, EVERY 12 HOURS

REACTIONS (3)
  - Bone cancer [Fatal]
  - Pain [Fatal]
  - Vomiting [Recovered/Resolved]
